FAERS Safety Report 7877190-1 (Version None)
Quarter: 2011Q4

REPORT INFORMATION
  Report Type: 
  Country: None (occurrence: None)
  Receive Date: 20111031
  Receipt Date: 20111027
  Transmission Date: 20120403
  Serious: Yes (Other)
  Sender: FDA-Public Use
  Company Number: US-ROCHE-791229

PATIENT
  Sex: Male
  Weight: 102.15 kg

DRUGS (1)
  1. ACCUTANE [Suspect]
     Indication: ACNE
     Route: 065
     Dates: start: 19970123, end: 19970814

REACTIONS (9)
  - INTESTINAL OBSTRUCTION [None]
  - DEPRESSION [None]
  - CHEILITIS [None]
  - XEROSIS [None]
  - INFLAMMATORY BOWEL DISEASE [None]
  - SUICIDAL IDEATION [None]
  - RHEUMATOID ARTHRITIS [None]
  - CROHN'S DISEASE [None]
  - INTESTINAL HAEMORRHAGE [None]
